FAERS Safety Report 16678914 (Version 1)
Quarter: 2019Q3

REPORT INFORMATION
  Report Type: Spontaneous
  Country: US (occurrence: US)
  Receive Date: 20190807
  Receipt Date: 20190807
  Transmission Date: 20191004
  Serious: No
  Sender: FDA-Public Use
  Company Number: US-TEVA-2019-US-1087431

PATIENT
  Sex: Male

DRUGS (11)
  1. SYNRIBO [Suspect]
     Active Substance: OMACETAXINE MEPESUCCINATE
     Indication: CHRONIC MYELOID LEUKAEMIA
     Dosage: DOSE 2.3MG/0.66ML
     Route: 065
     Dates: start: 20190723
  2. SAW PALMETTO [Concomitant]
     Active Substance: HERBALS\SAW PALMETTO
  3. OMEPRAZOLE. [Concomitant]
     Active Substance: OMEPRAZOLE
  4. MAGNESIUM [Concomitant]
     Active Substance: MAGNESIUM
  5. LOPERAMIDE [Concomitant]
     Active Substance: LOPERAMIDE
  6. MULTIVITAMIN [Concomitant]
     Active Substance: VITAMINS
  7. LOMOTIL [Concomitant]
     Active Substance: ATROPINE SULFATE\DIPHENOXYLATE HYDROCHLORIDE
  8. FISH OIL [Concomitant]
     Active Substance: FISH OIL
  9. VITAMIN D3 [Concomitant]
     Active Substance: CHOLECALCIFEROL
  10. SANDOSTATIN [Concomitant]
     Active Substance: OCTREOTIDE ACETATE
  11. ASPIRIN. [Concomitant]
     Active Substance: ASPIRIN

REACTIONS (3)
  - Back pain [Unknown]
  - Rash generalised [Unknown]
  - Fatigue [Unknown]

NARRATIVE: CASE EVENT DATE: 2019
